FAERS Safety Report 8234071 (Version 2)
Quarter: 2012Q4

REPORT INFORMATION
  Report Type: 
  Country: US (occurrence: US)
  Receive Date: 20111107
  Receipt Date: 20121107
  Transmission Date: 20130627
  Serious: Yes (Other)
  Sender: FDA-Public Use
  Company Number: US-AMGEN-USASP2011047274

PATIENT
  Age: 54 Year
  Sex: Female
  Weight: 62.59 kg

DRUGS (2)
  1. ENBREL [Suspect]
     Indication: RHEUMATOID ARTHRITIS
     Dosage: UNK
     Dates: start: 20080512
  2. ENBREL [Suspect]
     Dosage: 50 mg, qwk
     Dates: start: 20080701, end: 201107

REACTIONS (3)
  - Cutaneous lupus erythematosus [Not Recovered/Not Resolved]
  - Alopecia [Not Recovered/Not Resolved]
  - Rash erythematous [Not Recovered/Not Resolved]
